FAERS Safety Report 7225367-0 (Version None)
Quarter: 2011Q1

REPORT INFORMATION
  Report Type: 
  Country: None (occurrence: None)
  Receive Date: 20110113
  Receipt Date: 20110107
  Transmission Date: 20110831
  Serious: Yes (Other)
  Sender: FDA-Public Use
  Company Number: US-WATSON-2011-00153

PATIENT
  Sex: Female
  Weight: 72.562 kg

DRUGS (2)
  1. ALBUTEROL SULFATE AND IPRATROPIUM BROMIDE [Suspect]
     Indication: ASTHMA
     Dosage: NEBULIZED INHALER
     Route: 055
     Dates: start: 20100901, end: 20100901
  2. ALBUTEROL [Concomitant]
     Indication: ASTHMA
     Dosage: INHALER USED AS NEEDED
     Route: 055
     Dates: start: 19980101

REACTIONS (13)
  - DYSKINESIA [None]
  - AKATHISIA [None]
  - MUSCLE TIGHTNESS [None]
  - HEREDITARY DISORDER [None]
  - MOVEMENT DISORDER [None]
  - HEADACHE [None]
  - TREMOR [None]
  - PAIN OF SKIN [None]
  - MEDICATION ERROR [None]
  - CONVULSION [None]
  - SENSATION OF HEAVINESS [None]
  - PARAESTHESIA [None]
  - CONDITION AGGRAVATED [None]
